FAERS Safety Report 9903957 (Version 1)
Quarter: 2014Q1

REPORT INFORMATION
  Report Type: Spontaneous
  Country: US (occurrence: US)
  Receive Date: 20140218
  Receipt Date: 20140218
  Transmission Date: 20141002
  Serious: No
  Sender: FDA-Public Use
  Company Number: US-BIOGENIDEC-2014BI011793

PATIENT
  Age: 80 Year
  Sex: Male
  Weight: 89 kg

DRUGS (8)
  1. TECFIDERA [Suspect]
     Indication: MULTIPLE SCLEROSIS
     Route: 048
     Dates: start: 201311
  2. TECFIDERA [Suspect]
     Indication: MULTIPLE SCLEROSIS
     Route: 048
     Dates: start: 20140205
  3. BABY ASPIRIN [Concomitant]
  4. FISH OIL [Concomitant]
  5. BACLOFEN [Concomitant]
  6. VITAMIN D [Concomitant]
  7. METOPROLOL [Concomitant]
  8. COUMADIN [Concomitant]

REACTIONS (3)
  - Multiple sclerosis [Unknown]
  - Intentional underdose [Not Recovered/Not Resolved]
  - Flushing [Unknown]
